FAERS Safety Report 21060795 (Version 1)
Quarter: 2022Q3

REPORT INFORMATION
  Report Type: Report from Study
  Country: ES (occurrence: ES)
  Receive Date: 20220709
  Receipt Date: 20220709
  Transmission Date: 20221027
  Serious: Yes (Hospitalization)
  Sender: FDA-Public Use
  Company Number: None

PATIENT
  Age: 67 Year
  Sex: Male

DRUGS (6)
  1. VALSARTAN [Interacting]
     Active Substance: VALSARTAN
     Indication: Hypertension
     Dosage: VALSARTAN (7423A),FREQUENCY TIME : 1 DAY, UNIT DOSE :  320MG
     Route: 065
     Dates: start: 20220427
  2. FUROSEMIDE [Suspect]
     Active Substance: FUROSEMIDE
     Indication: Hypertension
     Dosage: FUROSEMIDE (1615A), UNIT DOSE : 80 MG , FREQUENCY TIME : 1 DAY
     Route: 065
     Dates: start: 20220427
  3. SPIRONOLACTONE [Interacting]
     Active Substance: SPIRONOLACTONE
     Indication: Hypertension
     Dosage: SPIRONOLACTONE (326A), UNIT DOSE : 25MG, FREQUENCY TIME : 1 DAY
     Dates: start: 20190109
  4. LYRICA [Concomitant]
     Active Substance: PREGABALIN
     Indication: Pain
     Dosage: UNIT DOSE : 150MG,FREQUENCY TIME : 1 DAY, STRENGTH : 150MG,100 CAPSULES
     Dates: start: 20210309
  5. ELIQUIS [Concomitant]
     Active Substance: APIXABAN
     Indication: Product used for unknown indication
     Dosage: 28 TABLETS, STRENGTH : 5MG,UNIT DOSE : 10 MG,FREQUENCY TIME : 1 DAY
     Dates: start: 20220107
  6. FUROSEMIDE [Concomitant]
     Active Substance: FUROSEMIDE
     Indication: Hypertension
     Dosage: FUROSEMIDE(1615A),UNIT DOSE : 40MG, FREQUENCY TIME : 1 DAY, DURATION :3 YEARS
     Dates: start: 201901, end: 20220426

REACTIONS (2)
  - Acute kidney injury [Recovered/Resolved]
  - Drug interaction [Unknown]

NARRATIVE: CASE EVENT DATE: 20220504
